FAERS Safety Report 18365616 (Version 2)
Quarter: 2020Q4

REPORT INFORMATION
  Report Type: Report from Study
  Country: US (occurrence: US)
  Receive Date: 20201009
  Receipt Date: 20201015
  Transmission Date: 20210114
  Serious: Yes (Other)
  Sender: FDA-Public Use
  Company Number: US-BRISTOL-MYERS SQUIBB COMPANY-BMS-2020-082070

PATIENT
  Age: 81 Year
  Sex: Female

DRUGS (1)
  1. APIXABAN [Suspect]
     Active Substance: APIXABAN
     Indication: PRODUCT USED FOR UNKNOWN INDICATION
     Route: 065

REACTIONS (8)
  - Dizziness [Unknown]
  - Gastric disorder [Unknown]
  - Malignant polyp [Unknown]
  - Lip swelling [Unknown]
  - Hyperhidrosis [Unknown]
  - Dyspnoea [Unknown]
  - Asthenia [Unknown]
  - Nipple disorder [Unknown]

NARRATIVE: CASE EVENT DATE: 20201008
